FAERS Safety Report 7461270-9 (Version None)
Quarter: 2011Q2

REPORT INFORMATION
  Report Type: 
  Country: None (occurrence: None)
  Receive Date: 20110506
  Receipt Date: 20110428
  Transmission Date: 20111010
  Serious: Yes (Hospitalization)
  Sender: FDA-Public Use
  Company Number: 2007BI021464

PATIENT
  Age: 42 Year
  Sex: Female

DRUGS (15)
  1. AVONEX [Suspect]
     Indication: RELAPSING-REMITTING MULTIPLE SCLEROSIS
     Route: 030
     Dates: start: 20040101
  2. STEROIDS [Concomitant]
     Indication: PRODUCT USED FOR UNKNOWN INDICATION
     Dates: start: 20050601
  3. METHYCOBAL [Concomitant]
     Indication: PRODUCT USED FOR UNKNOWN INDICATION
     Dates: start: 20060401
  4. ADETPHOS [Concomitant]
     Indication: PRODUCT USED FOR UNKNOWN INDICATION
     Dates: start: 20060401
  5. PREDONINE [Concomitant]
     Dates: start: 20070731
  6. RIVOTRIL [Concomitant]
     Indication: PRODUCT USED FOR UNKNOWN INDICATION
     Dates: start: 20020701
  7. TEGRETOL [Concomitant]
     Indication: PRODUCT USED FOR UNKNOWN INDICATION
     Dates: start: 20020701
  8. AVONEX [Suspect]
     Route: 030
     Dates: start: 20070612
  9. PREDONINE [Concomitant]
     Indication: PRODUCT USED FOR UNKNOWN INDICATION
     Dates: start: 20060419
  10. ALFACALCIDOL [Concomitant]
     Indication: PRODUCT USED FOR UNKNOWN INDICATION
     Dates: start: 20060401
  11. KETAS [Concomitant]
     Indication: PRODUCT USED FOR UNKNOWN INDICATION
     Dates: start: 20020701
  12. PREDONINE [Concomitant]
     Dates: start: 20070704, end: 20070730
  13. DANTRIUM [Concomitant]
     Indication: PRODUCT USED FOR UNKNOWN INDICATION
     Dates: start: 20020701
  14. RANITIDINE [Concomitant]
     Indication: PRODUCT USED FOR UNKNOWN INDICATION
     Dates: start: 20020701
  15. PROPIVERINE HYDROCHLORIDE [Concomitant]
     Indication: PRODUCT USED FOR UNKNOWN INDICATION
     Dates: start: 20020701

REACTIONS (6)
  - PYREXIA [None]
  - MALAISE [None]
  - HYPOKALAEMIA [None]
  - DECREASED APPETITE [None]
  - URINE KETONE BODY PRESENT [None]
  - DEHYDRATION [None]
